FAERS Safety Report 20728228 (Version 2)
Quarter: 2022Q2

REPORT INFORMATION
  Report Type: Report from Study
  Country: US (occurrence: US)
  Receive Date: 20220420
  Receipt Date: 20220527
  Transmission Date: 20220721
  Serious: Yes (Other)
  Sender: FDA-Public Use
  Company Number: US-NOVARTISPH-NVSC2022US084131

PATIENT
  Age: 63 Year
  Sex: Male

DRUGS (1)
  1. RYDAPT [Suspect]
     Active Substance: MIDOSTAURIN
     Indication: Product used for unknown indication
     Dosage: 25 MG
     Route: 048

REACTIONS (4)
  - Diabetes mellitus [Unknown]
  - Malignant neoplasm of eye [Unknown]
  - Eye injury [Unknown]
  - Visual impairment [Unknown]

NARRATIVE: CASE EVENT DATE: 20210909
